FAERS Safety Report 6157829-1 (Version None)
Quarter: 2009Q2

REPORT INFORMATION
  Report Type: 
  Country: None (occurrence: None)
  Receive Date: 20090414
  Receipt Date: 20090403
  Transmission Date: 20091009
  Serious: Yes (Other)
  Sender: FDA-Public Use
  Company Number: 2009AL002014

PATIENT
  Age: 40 Year
  Sex: Female

DRUGS (1)
  1. FLUOXETINE [Suspect]
     Indication: DEPRESSION
     Dosage: 20 MG UNK PO
     Route: 048
     Dates: start: 20090210, end: 20090309

REACTIONS (1)
  - RESTLESS LEGS SYNDROME [None]
